FAERS Safety Report 9593471 (Version 2)
Quarter: 2014Q2

REPORT INFORMATION
  Report Type: Report from Study
  Country: US (occurrence: US)
  Receive Date: 20131004
  Receipt Date: 20140508
  Transmission Date: 20141212
  Serious: No
  Sender: FDA-Public Use
  Company Number: US-ALEXION-A201301872

PATIENT
  Sex: 0

DRUGS (23)
  1. SOLIRIS [Suspect]
     Indication: PAROXYSMAL NOCTURNAL HAEMOGLOBINURIA
     Dosage: UNK MG, UNK
     Route: 042
  2. SOLIRIS [Suspect]
     Dosage: 1200 MG, Q12D
     Route: 042
     Dates: start: 20111202
  3. ALLOPURINOL [Concomitant]
     Indication: BLOOD URIC ACID
     Dosage: 300 MG, QD
     Route: 065
     Dates: start: 20110316
  4. AMBIEN [Concomitant]
     Indication: INSOMNIA
     Dosage: 5 MG,HS, PRN
     Route: 065
     Dates: start: 20110316
  5. AMBIEN [Concomitant]
     Indication: SLEEP DISORDER
  6. ATIVAN [Concomitant]
     Indication: ANXIETY
     Dosage: 1 MG,Q 4 TO 6 HOURS PRN
     Route: 065
     Dates: start: 20110316
  7. LEVAQUIN [Concomitant]
     Indication: ANTIBIOTIC THERAPY
     Dosage: 500 MG, QD
     Route: 065
     Dates: start: 20110316
  8. PERCOCET                           /00446701/ [Concomitant]
     Indication: PAIN
     Dosage: 10-325 MG Q4-6 HOURS PRN
     Route: 065
     Dates: start: 20110316
  9. PREDNISONE [Concomitant]
     Indication: STEROID THERAPY
     Dosage: 100 MG, QD
     Route: 065
     Dates: start: 20110316
  10. PROCHLORPERAZINE MALEATE [Concomitant]
     Indication: NAUSEA
     Dosage: 10 MG, Q6H PRN
     Route: 065
     Dates: start: 20110316
  11. ZOFRAN                             /00955301/ [Concomitant]
     Indication: NAUSEA
     Dosage: 8 MG, Q6H
     Route: 065
     Dates: start: 20110316
  12. ZOFRAN                             /00955301/ [Concomitant]
     Indication: VOMITING
  13. MAGIC MOUTHWASH [Concomitant]
     Indication: STOMATITIS
     Dosage: 10 ML, Q4H PRN
     Route: 048
     Dates: start: 20110316
  14. ACYCLOVIR                          /00587301/ [Concomitant]
     Indication: ANTIVIRAL TREATMENT
     Dosage: 400 MG, TID
     Route: 065
     Dates: start: 20110503
  15. CARAFATE [Concomitant]
     Indication: ULCER
     Dosage: 1 DF, TID
     Route: 065
     Dates: start: 20110603
  16. NEXIUM                             /01479302/ [Concomitant]
     Indication: GASTROOESOPHAGEAL REFLUX DISEASE
     Dosage: 40 MG, QD
     Route: 065
     Dates: start: 20110603
  17. CAPHOSOL [Concomitant]
     Indication: STOMATITIS
     Dosage: 1 SOLUTION 5 TIMES A DAY
     Route: 065
     Dates: start: 20110610
  18. POTASSIUM CHLORIDE [Concomitant]
     Indication: ELECTROLYTE SUBSTITUTION THERAPY
     Dosage: 20 MEQ/15 ML Q2H
     Route: 065
     Dates: start: 20110617
  19. ASPIRIN [Concomitant]
     Indication: PRODUCT USED FOR UNKNOWN INDICATION
     Dosage: 81 MG, QD
     Route: 065
     Dates: start: 20111121
  20. FISH OIL [Concomitant]
     Indication: SUPPLEMENTATION THERAPY
     Dosage: 340 MG, QD
     Route: 065
     Dates: start: 20111121
  21. MIRAPEX [Concomitant]
     Indication: RESTLESS LEGS SYNDROME
     Dosage: 0.5 MG, HS
     Route: 065
     Dates: start: 20111121
  22. MIRAPEX [Concomitant]
     Indication: PARKINSON^S DISEASE
  23. NAPROXEN [Concomitant]
     Indication: ANTIINFLAMMATORY THERAPY
     Dosage: 500 MG, BID
     Route: 065
     Dates: start: 20111121

REACTIONS (3)
  - Hip fracture [Not Recovered/Not Resolved]
  - Arthralgia [Not Recovered/Not Resolved]
  - Incorrect dose administered [Not Recovered/Not Resolved]
